FAERS Safety Report 5218445-9 (Version None)
Quarter: 2007Q1

REPORT INFORMATION
  Report Type: 
  Country: None (occurrence: None)
  Receive Date: 20061201
  Receipt Date: 20060913
  Transmission Date: 20070707
  Serious: Yes (Hospitalization)
  Sender: FDA-Public Use
  Company Number: SPV1-2006-00760

PATIENT
  Age: 6 Year
  Sex: Male
  Weight: 24.5 kg

DRUGS (3)
  1. ADDERALL 30 [Suspect]
     Indication: ATTENTION DEFICIT/HYPERACTIVITY DISORDER
     Dosage: 30 MG IN AM, ORAL
     Route: 048
     Dates: start: 20050601
  2. CLONIDINE (CLONIDNE) [Concomitant]
  3. DELSYM [Concomitant]

REACTIONS (1)
  - CONVULSION [None]
